FAERS Safety Report 8594583-8 (Version None)
Quarter: 2012Q3

REPORT INFORMATION
  Report Type: 
  Country: None (occurrence: None)
  Receive Date: 20120801
  Receipt Date: 20120719
  Transmission Date: 20120928
  Serious: Yes (Other)
  Sender: FDA-Public Use
  Company Number: FK201202046

PATIENT
  Age: 3 Year
  Sex: Male

DRUGS (6)
  1. FLUDARABINE PHOSPHATE [Suspect]
     Indication: BONE MARROW CONDITIONING REGIMEN
     Dosage: 5X30 MG/M2, INTRAVENOUS (NOT OTHERWISE SPECIFIED)
     Route: 042
  2. BUSULFEX [Suspect]
     Indication: BONE MARROW CONDITIONING REGIMEN
     Dosage: 2X1 MG/KG
  3. CYCLOSPORINE [Suspect]
     Indication: PROPHYLAXIS AGAINST GRAFT VERSUS HOST DISEASE
  4. ANTI-THYMOCYTE GLOBULIN NOS [Suspect]
     Indication: BONE MARROW CONDITIONING REGIMEN
     Dosage: 3 X 20 MG/KG., INTRAVENOUS (NOT OTHERWISE SPECIFIED)
     Route: 042
  5. MUROMONAB-CD3 (MUROMONAB-CD3) [Suspect]
     Indication: PROPHYLAXIS AGAINST GRAFT VERSUS HOST DISEASE
  6. METHYLPREDNISOLONE SODIUM SUCCINATE [Suspect]
     Indication: PROPHYLAXIS AGAINST GRAFT VERSUS HOST DISEASE

REACTIONS (10)
  - ADENOVIRUS INFECTION [None]
  - CYSTITIS HAEMORRHAGIC [None]
  - REFUSAL OF TREATMENT BY RELATIVE [None]
  - MUCOSAL INFLAMMATION [None]
  - VIRAL INFECTION [None]
  - BK VIRUS INFECTION [None]
  - AGRANULOCYTOSIS [None]
  - LEUKOPENIA [None]
  - TOXICITY TO VARIOUS AGENTS [None]
  - POST TRANSPLANT LYMPHOPROLIFERATIVE DISORDER [None]
